FAERS Safety Report 6549779-3 (Version None)
Quarter: 2010Q1

REPORT INFORMATION
  Report Type: 
  Country: None (occurrence: None)
  Receive Date: 20100125
  Receipt Date: 20100114
  Transmission Date: 20100710
  Serious: Yes (Other)
  Sender: FDA-Public Use
  Company Number: BR-ASTRAZENECA-2010SE02058

PATIENT
  Age: 36 Year
  Sex: Male
  Weight: 65 kg

DRUGS (1)
  1. NEXIUM [Suspect]
     Indication: GASTROOESOPHAGEAL REFLUX DISEASE
     Route: 048
     Dates: start: 20100107, end: 20100112

REACTIONS (11)
  - ASTHENIA [None]
  - CHAPPED LIPS [None]
  - HEADACHE [None]
  - LEUKOPENIA [None]
  - ODYNOPHAGIA [None]
  - PAIN IN EXTREMITY [None]
  - PHARYNGEAL INFLAMMATION [None]
  - PYREXIA [None]
  - RASH GENERALISED [None]
  - SWELLING FACE [None]
  - THROAT IRRITATION [None]
